FAERS Safety Report 7654131-3 (Version None)
Quarter: 2011Q3

REPORT INFORMATION
  Report Type: 
  Country: None (occurrence: None)
  Receive Date: 20110803
  Receipt Date: 20110729
  Transmission Date: 20111222
  Serious: Yes (Death, Other)
  Sender: FDA-Public Use
  Company Number: PHHY2011DE68978

PATIENT
  Sex: Female
  Weight: 62 kg

DRUGS (4)
  1. PACLITAXEL [Concomitant]
     Dosage: UNK UKN, 10 CYCLES
     Dates: start: 20101219
  2. CALCIUM ACETATE [Concomitant]
     Dosage: 500 MG, DAILY
     Route: 048
  3. VITAMIN D [Concomitant]
     Dosage: 400 MG, DAILY
     Route: 048
  4. ZOMETA [Suspect]
     Indication: PROPHYLAXIS
     Dosage: 4 MG, EVERY 4 WEEKS
     Route: 042
     Dates: start: 20101222, end: 20110608

REACTIONS (7)
  - METASTASES TO SOFT TISSUE [None]
  - METASTASES TO LUNG [None]
  - NEOPLASM PROGRESSION [None]
  - METASTASES TO BONE [None]
  - DEATH [None]
  - NEOPLASM MALIGNANT [None]
  - METASTASES TO LIVER [None]
